FAERS Safety Report 20663992 (Version 1)
Quarter: 2022Q2

REPORT INFORMATION
  Report Type: Other
  Country: US (occurrence: US)
  Receive Date: 20220401
  Receipt Date: 20220401
  Transmission Date: 20220720
  Serious: No
  Sender: FDA-Public Use
  Company Number: US-AMAG Pharmaceuticals, Inc.-AMAG202100370

PATIENT
  Age: 34 Year
  Sex: Female

DRUGS (1)
  1. MAKENA [Suspect]
     Active Substance: HYDROXYPROGESTERONE CAPROATE
     Indication: Product used for unknown indication
     Route: 058
     Dates: start: 20201223

REACTIONS (3)
  - Arthralgia [Unknown]
  - Burning sensation [Unknown]
  - Product dose omission issue [Unknown]

NARRATIVE: CASE EVENT DATE: 20210113
